FAERS Safety Report 16972984 (Version 1)
Quarter: 2019Q4

REPORT INFORMATION
  Report Type: Spontaneous
  Country: CA (occurrence: CA)
  Receive Date: 20191030
  Receipt Date: 20191030
  Transmission Date: 20200122
  Serious: Yes (Other)
  Sender: FDA-Public Use
  Company Number: CA-AUROBINDO-AUR-APL-2019-068838

PATIENT
  Age: 66 Year
  Sex: Male

DRUGS (13)
  1. SANDOSTATIN [Suspect]
     Active Substance: OCTREOTIDE ACETATE
     Dosage: 60 MILLIGRAM, EVERY MONTH
     Route: 030
  2. VALSARTAN. [Suspect]
     Active Substance: VALSARTAN
     Dosage: 80 MILLIGRAM, ONCE A DAY
     Route: 048
  3. SANDOSTATIN [Suspect]
     Active Substance: OCTREOTIDE ACETATE
     Dosage: 60 MILLIGRAM, ONE EVERY 3 WEEKS
     Route: 030
  4. SUNITINIB [Concomitant]
     Active Substance: SUNITINIB
     Indication: PRODUCT USED FOR UNKNOWN INDICATION
     Dosage: 37.5 MILLIGRAM, ONCE A DAY
     Route: 065
  5. SUNITINIB [Concomitant]
     Active Substance: SUNITINIB
     Dosage: 50 MILLIGRAM, ONCE A DAY
     Route: 065
  6. SANDOSTATIN [Suspect]
     Active Substance: OCTREOTIDE ACETATE
     Indication: PANCREATIC NEUROENDOCRINE TUMOUR METASTATIC
     Dosage: 30 MILLIGRAM
     Route: 065
  7. AFINITOR [Suspect]
     Active Substance: EVEROLIMUS
     Indication: PANCREATIC NEUROENDOCRINE TUMOUR METASTATIC
     Dosage: 10 MILLIGRAM, ONCE A DAY
     Route: 048
  8. SANDOSTATIN [Suspect]
     Active Substance: OCTREOTIDE ACETATE
     Dosage: 30 MILLIGRAM
     Route: 030
  9. SANDOSTATIN [Suspect]
     Active Substance: OCTREOTIDE ACETATE
     Indication: PANCREATIC NEUROENDOCRINE TUMOUR METASTATIC
     Dosage: 20 MILLIGRAM, EVERY MONTH
     Route: 030
  10. INSULIN [Concomitant]
     Active Substance: INSULIN NOS
     Indication: PRODUCT USED FOR UNKNOWN INDICATION
     Dosage: UNK
     Route: 065
  11. VALSARTAN. [Suspect]
     Active Substance: VALSARTAN
     Indication: HYPERTENSION
     Dosage: 160 MILLIGRAM, ONCE A DAY
     Route: 048
  12. SANDOSTATIN [Suspect]
     Active Substance: OCTREOTIDE ACETATE
     Indication: PANCREATIC NEUROENDOCRINE TUMOUR METASTATIC
     Dosage: 30 MILLIGRAM, EVERY MONTH
     Route: 030
  13. TERAZOSIN [Concomitant]
     Active Substance: TERAZOSIN HYDROCHLORIDE
     Indication: HYPERTENSION
     Dosage: 2 MILLIGRAM, ONCE A DAY
     Route: 065

REACTIONS (23)
  - Blood glucose decreased [Recovering/Resolving]
  - Blood pressure fluctuation [Recovering/Resolving]
  - Decreased appetite [Recovering/Resolving]
  - Malignant neoplasm progression [Recovering/Resolving]
  - Underdose [Recovering/Resolving]
  - Asthenia [Recovering/Resolving]
  - Blood pressure systolic increased [Recovering/Resolving]
  - Fatigue [Recovering/Resolving]
  - Hepatic lesion [Recovering/Resolving]
  - Product dispensing error [Recovering/Resolving]
  - Hangover [Recovering/Resolving]
  - Metastases to liver [Recovering/Resolving]
  - Nausea [Recovering/Resolving]
  - White coat hypertension [Recovering/Resolving]
  - Diarrhoea [Recovering/Resolving]
  - Syringe issue [Recovering/Resolving]
  - Needle issue [Recovering/Resolving]
  - Malaise [Recovering/Resolving]
  - Inappropriate schedule of product administration [Recovering/Resolving]
  - Drug ineffective [Recovering/Resolving]
  - Blood pressure increased [Recovering/Resolving]
  - Heart rate decreased [Recovering/Resolving]
  - Hepatic steatosis [Recovering/Resolving]
